FAERS Safety Report 4613864-3 (Version None)
Quarter: 2005Q1

REPORT INFORMATION
  Report Type: 
  Country: None (occurrence: None)
  Receive Date: 20050315
  Receipt Date: 20050222
  Transmission Date: 20050727
  Serious: Yes (Life-Threatening, Hospitalization)
  Sender: FDA-Public Use
  Company Number: WAES 0308GBR00095

PATIENT
  Age: 64 Year
  Sex: Female

DRUGS (4)
  1. VIOXX [Suspect]
     Indication: NEOPLASM PROPHYLAXIS
     Dosage: 25 MG/ DAILY PO
     Route: 048
     Dates: start: 20020917, end: 20030814
  2. DIGOXIN [Concomitant]
  3. FERROUSSO4 [Concomitant]
  4. OMEPRAZOLE [Concomitant]

REACTIONS (12)
  - ACUTE CORONARY SYNDROME [None]
  - ALANINE AMINOTRANSFERASE INCREASED [None]
  - ATRIAL FIBRILLATION [None]
  - BLOOD ALKALINE PHOSPHATASE INCREASED [None]
  - BLOOD CALCIUM DECREASED [None]
  - BUNDLE BRANCH BLOCK LEFT [None]
  - ENDOCARDITIS [None]
  - HAEMOGLOBIN DECREASED [None]
  - LEFT VENTRICULAR FAILURE [None]
  - LOSS OF CONSCIOUSNESS [None]
  - PULMONARY OEDEMA [None]
  - TROPONIN INCREASED [None]
